FAERS Safety Report 7560120-X (Version None)
Quarter: 2011Q2

REPORT INFORMATION
  Report Type: 
  Country: None (occurrence: None)
  Receive Date: 20110621
  Receipt Date: 20110620
  Transmission Date: 20111010
  Serious: Yes (Hospitalization)
  Sender: FDA-Public Use
  Company Number: A0882996A

PATIENT
  Sex: Male

DRUGS (2)
  1. AVANDIA [Suspect]
     Dosage: 4MG TWICE PER DAY
     Route: 048
     Dates: start: 20040913, end: 20070201
  2. AVANDAMET [Suspect]
     Dosage: 1TAB TWICE PER DAY
     Dates: start: 20040913, end: 20060406

REACTIONS (14)
  - RENAL INJURY [None]
  - FATIGUE [None]
  - DYSPNOEA [None]
  - DIZZINESS [None]
  - CHEST PAIN [None]
  - HYPERTENSION [None]
  - WEIGHT INCREASED [None]
  - CARDIAC FAILURE [None]
  - VISION BLURRED [None]
  - EYE DISORDER [None]
  - DEPRESSION [None]
  - FLUID RETENTION [None]
  - CONDITION AGGRAVATED [None]
  - CARDIAC DISORDER [None]
